FAERS Safety Report 4349455-1 (Version None)
Quarter: 2004Q2

REPORT INFORMATION
  Report Type: 
  Country: None (occurrence: None)
  Receive Date: 20040426
  Receipt Date: 20040413
  Transmission Date: 20050107
  Serious: Yes (Hospitalization)
  Sender: FDA-Public Use
  Company Number: 2004CG00710

PATIENT
  Age: 7 Year
  Sex: Male

DRUGS (15)
  1. MOPRAL [Suspect]
     Indication: CONVULSION
     Dosage: 20 MG DAILY PO
     Route: 048
     Dates: end: 20040318
  2. CLAFORAN [Suspect]
     Dosage: 1 G TID IV
     Route: 042
     Dates: start: 20040303, end: 20040318
  3. NARCOZEP [Suspect]
     Dosage: 0.56 MG DAILY  IV
     Route: 042
     Dates: start: 20040223, end: 20040314
  4. NARCOZEP [Suspect]
     Dates: start: 20040302, end: 20040314
  5. NESDONAL [Suspect]
     Dosage: 56 MG DAILY IV
     Route: 042
     Dates: start: 20040223, end: 20040312
  6. SOLU-MEDROL [Suspect]
     Dosage: 30 MG DAILY IV
     Route: 042
  7. FENTANYL [Suspect]
     Dosage: 70 UG DAILY IV
     Route: 042
     Dates: start: 20040223, end: 20040323
  8. ADALAT [Suspect]
     Dosage: 20 MG BID PO
     Route: 048
     Dates: end: 20040223
  9. SECTRAL [Suspect]
     Dosage: 2 MG BI
     Dates: end: 20040223
  10. ASPEGIC 325 [Suspect]
     Dosage: 100 MG
     Dates: end: 20040223
  11. LASIX [Suspect]
     Dates: start: 20040223, end: 20040224
  12. ACETAMINOPHEN [Suspect]
     Dosage: 330 MG QID
     Dates: start: 20040223, end: 20040226
  13. ORBENIN CAP [Suspect]
     Dates: start: 20040223, end: 20040226
  14. TEGELINE [Suspect]
     Dates: start: 20040223, end: 20040228
  15. TRANDATE [Suspect]
     Indication: HYPERTENSION
     Dates: start: 20040224

REACTIONS (12)
  - ANAEMIA [None]
  - COMA [None]
  - DECEREBRATION [None]
  - HYPERTENSION [None]
  - INCREASED BRONCHIAL SECRETION [None]
  - INFLAMMATION [None]
  - INTRAVENTRICULAR HAEMORRHAGE [None]
  - LEUKOCYTOSIS [None]
  - LOSS OF CONSCIOUSNESS [None]
  - LYMPHOPENIA [None]
  - MIOSIS [None]
  - PLATELET COUNT INCREASED [None]
